FAERS Safety Report 18979838 (Version 3)
Quarter: 2021Q2

REPORT INFORMATION
  Report Type: Spontaneous
  Country: US (occurrence: US)
  Receive Date: 20210308
  Receipt Date: 20210405
  Transmission Date: 20210717
  Serious: No
  Sender: FDA-Public Use
  Company Number: US-SA-2021SA059614

PATIENT
  Sex: Female

DRUGS (2)
  1. RANITIDINE. [Concomitant]
     Active Substance: RANITIDINE
     Dosage: UNK
     Route: 065
  2. CHILDREN^S ALLEGRA ALLERGY [Suspect]
     Active Substance: FEXOFENADINE HYDROCHLORIDE
     Indication: MULTIPLE ALLERGIES
     Dosage: 1/2 OF DOES ,FULL DOES ,QUARTER OF A DOSE
     Route: 065

REACTIONS (7)
  - Allergy to metals [Unknown]
  - Diarrhoea [Unknown]
  - Condition aggravated [Unknown]
  - Dyspepsia [Unknown]
  - Rash [Unknown]
  - Product use issue [Unknown]
  - Headache [Unknown]
